FAERS Safety Report 7550690-X (Version None)
Quarter: 2011Q2

REPORT INFORMATION
  Report Type: 
  Country: None (occurrence: None)
  Receive Date: 20110616
  Receipt Date: 20110608
  Transmission Date: 20111010
  Serious: Yes (Hospitalization)
  Sender: FDA-Public Use
  Company Number: US-ELI_LILLY_AND_COMPANY-US201106002793

PATIENT
  Sex: Female

DRUGS (3)
  1. METFORMIN HCL [Concomitant]
     Indication: DIABETES MELLITUS
     Dosage: 850 MG, BID
  2. HUMALOG MIX 75/25 [Suspect]
     Indication: DIABETES MELLITUS
     Dosage: 80 U, EACH MORNING
     Route: 065
     Dates: start: 20100601
  3. HUMALOG MIX 75/25 [Suspect]
     Dosage: 90 U, EACH EVENING
     Route: 065
     Dates: start: 20100601

REACTIONS (2)
  - CYST [None]
  - INCORRECT STORAGE OF DRUG [None]
